FAERS Safety Report 8289668-X (Version None)
Quarter: 2012Q2

REPORT INFORMATION
  Report Type: 
  Country: None (occurrence: None)
  Receive Date: 20120417
  Receipt Date: 20120409
  Transmission Date: 20120825
  Serious: Yes (Other)
  Sender: FDA-Public Use
  Company Number: US-BAYER-2012-010059

PATIENT
  Age: 31 Year
  Sex: Female
  Weight: 83.9 kg

DRUGS (1)
  1. MIRENA [Suspect]
     Indication: CONTRACEPTION
     Dosage: 20 ?G/D, CONT
     Route: 015
     Dates: start: 20110613, end: 20111223

REACTIONS (4)
  - PAIN [None]
  - ABDOMINAL PAIN [None]
  - DEVICE DISLOCATION [None]
  - GENITAL HAEMORRHAGE [None]
